FAERS Safety Report 24070411 (Version 1)
Quarter: 2024Q3

REPORT INFORMATION
  Report Type: Report from Study
  Country: RO (occurrence: RO)
  Receive Date: 20240710
  Receipt Date: 20240710
  Transmission Date: 20241017
  Serious: No
  Sender: ROCHE
  Company Number: RO-ROCHE-3494521

PATIENT
  Age: 52 Year
  Sex: Female
  Weight: 52.0 kg

DRUGS (1)
  1. PHESGO [Suspect]
     Active Substance: HYALURONIDASE-ZZXF\PERTUZUMAB\TRASTUZUMAB
     Indication: Breast cancer
     Route: 065

REACTIONS (5)
  - Pain in extremity [Unknown]
  - Headache [Unknown]
  - Depression [Unknown]
  - Memory impairment [Unknown]
  - Ill-defined disorder [Unknown]
